FAERS Safety Report 16245485 (Version 5)
Quarter: 2019Q4

REPORT INFORMATION
  Report Type: Report from Study
  Country: US (occurrence: US)
  Receive Date: 20190426
  Receipt Date: 20191223
  Transmission Date: 20200122
  Serious: Yes (Hospitalization)
  Sender: FDA-Public Use
  Company Number: PHEH2019US017690

PATIENT
  Age: 69 Year
  Sex: Female
  Weight: 54 kg

DRUGS (5)
  1. LETAIRIS [Concomitant]
     Active Substance: AMBRISENTAN
     Indication: PULMONARY ARTERIAL HYPERTENSION
     Route: 065
  2. ELIQUIS [Concomitant]
     Active Substance: APIXABAN
     Indication: PULMONARY ARTERIAL HYPERTENSION
     Route: 065
  3. TREPROSTINIL. [Suspect]
     Active Substance: TREPROSTINIL
     Indication: PULMONARY ARTERIAL HYPERTENSION
     Dosage: (67 NG/KG/MIN), CONTINUOUSLY
     Route: 042
     Dates: start: 20190416
  4. TREPROSTINIL. [Suspect]
     Active Substance: TREPROSTINIL
     Dosage: (67 NG/KG/MIN), CONTINUOUSLY
     Route: 042
     Dates: start: 20190416
  5. ADCIRCA [Concomitant]
     Active Substance: TADALAFIL
     Indication: PULMONARY ARTERIAL HYPERTENSION
     Route: 065

REACTIONS (4)
  - Clostridium difficile infection [Unknown]
  - Epistaxis [Unknown]
  - Blood iron decreased [Unknown]
  - Fluid overload [Unknown]

NARRATIVE: CASE EVENT DATE: 20191027
